FAERS Safety Report 24429133 (Version 1)
Quarter: 2024Q4

REPORT INFORMATION
  Report Type: Spontaneous
  Country: GB (occurrence: GB)
  Receive Date: 20241011
  Receipt Date: 20241011
  Transmission Date: 20250115
  Serious: Yes (Other)
  Sender: TEVA
  Company Number: GB-MHRA-EMIS-6128-faba6ac7-cf20-4501-8002-2af9e420c299

PATIENT
  Age: 28 Year
  Sex: Female
  Weight: 49 kg

DRUGS (1)
  1. TRIMETHOPRIM [Suspect]
     Active Substance: TRIMETHOPRIM
     Dosage: REQUIRED PRIOR TO EXPOSURE TO UTI TRIGGER
     Route: 065

REACTIONS (1)
  - Myalgia [Unknown]
